FAERS Safety Report 25260317 (Version 2)
Quarter: 2025Q2

REPORT INFORMATION
  Report Type: Spontaneous
  Country: US (occurrence: US)
  Receive Date: 20250501
  Receipt Date: 20250512
  Transmission Date: 20250716
  Serious: No
  Sender: BIOGEN
  Company Number: US-BIOGEN-2024BI01249756

PATIENT
  Sex: Female

DRUGS (20)
  1. VUMERITY [Suspect]
     Active Substance: DIROXIMEL FUMARATE
     Indication: Multiple sclerosis
     Route: 050
     Dates: start: 20240124
  2. VUMERITY [Suspect]
     Active Substance: DIROXIMEL FUMARATE
     Dosage: TAKE 2 CAPSULES (462MG) BY MOUTH TWICE DAILY
     Route: 050
     Dates: start: 2024
  3. GABAPENTIN [Concomitant]
     Active Substance: GABAPENTIN
     Route: 050
  4. SIMVASTATIN [Concomitant]
     Active Substance: SIMVASTATIN
     Route: 050
  5. LISINOPRIL [Concomitant]
     Active Substance: LISINOPRIL
     Route: 050
  6. VITAMIN C [Concomitant]
     Active Substance: ASCORBIC ACID
     Route: 050
  7. ZINC [Concomitant]
     Active Substance: ZINC
     Route: 050
  8. DONEPEZIL HYDROCHLORIDE [Concomitant]
     Active Substance: DONEPEZIL HYDROCHLORIDE
     Route: 050
  9. ASPIRIN [Concomitant]
     Active Substance: ASPIRIN
     Route: 050
  10. DEXTROAMPHETAMINE SACCHARATE, AMPHETAMINE ASPARTATE, DEXTROAMPHETAMINE [Concomitant]
     Active Substance: AMPHETAMINE ASPARTATE\AMPHETAMINE SULFATE\DEXTROAMPHETAMINE SACCHARATE\DEXTROAMPHETAMINE SULFATE
     Route: 050
  11. DIAZEPAM [Concomitant]
     Active Substance: DIAZEPAM
     Route: 050
  12. BIOTIN [Concomitant]
     Active Substance: BIOTIN
     Route: 050
  13. MINERALS\VITAMINS [Concomitant]
     Active Substance: MINERALS\VITAMINS
     Route: 050
  14. OCUVITE [Concomitant]
     Active Substance: VITAMINS
     Route: 050
  15. LUTEIN [Concomitant]
     Active Substance: LUTEIN
     Route: 050
  16. FISH OIL [Concomitant]
     Active Substance: FISH OIL
     Route: 050
  17. MAGNESIUM [Concomitant]
     Active Substance: MAGNESIUM
     Route: 050
  18. LAMOTRIGINE [Concomitant]
     Active Substance: LAMOTRIGINE
     Route: 050
  19. BACLOFEN [Concomitant]
     Active Substance: BACLOFEN
     Route: 050
  20. GEMTESA [Concomitant]
     Active Substance: VIBEGRON
     Route: 050

REACTIONS (8)
  - Somnolence [Not Recovered/Not Resolved]
  - Fatigue [Unknown]
  - Ageusia [Unknown]
  - Stress [Unknown]
  - Multiple sclerosis relapse [Unknown]
  - Cognitive disorder [Unknown]
  - Nausea [Not Recovered/Not Resolved]
  - Diarrhoea [Not Recovered/Not Resolved]

NARRATIVE: CASE EVENT DATE: 20240101
